FAERS Safety Report 15041322 (Version 1)
Quarter: 2018Q2

REPORT INFORMATION
  Report Type: Spontaneous
  Country: US (occurrence: US)
  Receive Date: 20180621
  Receipt Date: 20180621
  Transmission Date: 20180711
  Serious: Yes (Death, Other)
  Sender: FDA-Public Use
  Company Number: US-ZYDUS-020571

PATIENT

DRUGS (2)
  1. METHOTREXATE. [Suspect]
     Active Substance: METHOTREXATE
     Indication: CHEMOTHERAPY
     Route: 026
  2. FLUOROURACIL. [Suspect]
     Active Substance: FLUOROURACIL
     Indication: CHEMOTHERAPY
     Route: 026

REACTIONS (3)
  - Keratoacanthoma [Not Recovered/Not Resolved]
  - Neoplasm recurrence [Not Recovered/Not Resolved]
  - Skin squamous cell carcinoma metastatic [Fatal]
